FAERS Safety Report 9030341 (Version 1)
Quarter: 2013Q1

REPORT INFORMATION
  Report Type: Spontaneous
  Country: BR (occurrence: BR)
  Receive Date: 20130122
  Receipt Date: 20130122
  Transmission Date: 20140127
  Serious: Yes (Other)
  Sender: FDA-Public Use
  Company Number: BR-PFIZER INC-2013019872

PATIENT
  Age: 54 Year
  Sex: Female
  Weight: 45 kg

DRUGS (2)
  1. FRONTAL [Suspect]
     Indication: ANXIETY
     Dosage: 2 MG, 1X/DAY
     Route: 048
     Dates: end: 201110
  2. FRONTAL XR [Suspect]
     Indication: ANXIETY
     Dosage: 2 MG, 1X/DAY
     Route: 048
     Dates: start: 201211, end: 20130115

REACTIONS (1)
  - Cerebral ischaemia [Unknown]
